FAERS Safety Report 4641895-6 (Version None)
Quarter: 2005Q2

REPORT INFORMATION
  Report Type: 
  Country: None (occurrence: None)
  Receive Date: 20050420
  Receipt Date: 20050411
  Transmission Date: 20051028
  Serious: Yes (Death, Hospitalization)
  Sender: FDA-Public Use
  Company Number: 141824USA

PATIENT
  Age: 45 Year
  Sex: Female

DRUGS (10)
  1. PROPOFOL [Suspect]
     Indication: ANAESTHESIA
     Dosage: 40 MILLIGRAM
     Dates: start: 20050408
  2. PROPOFOL [Suspect]
     Indication: TOOTH EXTRACTION
     Dosage: 40 MILLIGRAM
     Dates: start: 20050408
  3. FENTANYL [Suspect]
     Dates: start: 20050408
  4. VERSED [Suspect]
     Dosage: 2.5 MILLIGRAM
     Dates: start: 20050408
  5. DECADRON [Suspect]
     Dosage: 3 CUBIC CENT
     Dates: start: 20050408
  6. ASPIRIN [Concomitant]
  7. NITROSTAT [Concomitant]
  8. PREMARIN [Concomitant]
  9. QUINIDINE SULFATE [Concomitant]
  10. ALBUTEROL [Concomitant]

REACTIONS (6)
  - ANAPHYLACTIC REACTION [None]
  - BRAIN DEATH [None]
  - INTUBATION COMPLICATION [None]
  - OXYGEN SATURATION DECREASED [None]
  - RETROGNATHIA [None]
  - SWOLLEN TONGUE [None]
